FAERS Safety Report 11932261 (Version 1)
Quarter: 2016Q1

REPORT INFORMATION
  Report Type: Spontaneous
  Country: US (occurrence: US)
  Receive Date: 20160120
  Receipt Date: 20160120
  Transmission Date: 20160526
  Serious: No
  Sender: FDA-Public Use
  Company Number: US-SA-2015SA119728

PATIENT
  Sex: Female
  Weight: 54.43 kg

DRUGS (2)
  1. DEMEROL [Suspect]
     Active Substance: MEPERIDINE HYDROCHLORIDE
     Route: 065
  2. KETEK [Suspect]
     Active Substance: TELITHROMYCIN
     Route: 065

REACTIONS (1)
  - Hypersensitivity [Unknown]
